FAERS Safety Report 24687024 (Version 1)
Quarter: 2024Q4

REPORT INFORMATION
  Report Type: Spontaneous
  Country: US (occurrence: US)
  Receive Date: 20241202
  Receipt Date: 20241202
  Transmission Date: 20250115
  Serious: No
  Sender: PFIZER
  Company Number: US-PFIZER INC-202400314353

PATIENT
  Age: 63 Year
  Sex: Female

DRUGS (13)
  1. IBRANCE [Suspect]
     Active Substance: PALBOCICLIB
     Dosage: 1 TABLET (100 MG) DAILY BY MOUTH FOR 21 DAYS ON, THEN 7 DAYS OFF
     Route: 048
     Dates: start: 20241126
  2. MOUNJARO [Concomitant]
     Active Substance: TIRZEPATIDE
  3. EXEMESTANE [Concomitant]
     Active Substance: EXEMESTANE
  4. FLUOCINONIDE [Concomitant]
     Active Substance: FLUOCINONIDE
  5. TUMS [Concomitant]
     Active Substance: CALCIUM CARBONATE
  6. STOOL SOFTENER-LAXATIVE [Concomitant]
  7. METOPROLOL SUCCINATE [Concomitant]
     Active Substance: METOPROLOL SUCCINATE
  8. CLARITIN [Concomitant]
     Active Substance: LORATADINE
  9. METFORMIN HYDROCHLORIDE [Concomitant]
     Active Substance: METFORMIN HYDROCHLORIDE
  10. HYDROCHLOROTHIAZIDE [Concomitant]
     Active Substance: HYDROCHLOROTHIAZIDE
  11. FLUTICASONE PROPIONATE [Concomitant]
     Active Substance: FLUTICASONE PROPIONATE
  12. XGEVA [Concomitant]
     Active Substance: DENOSUMAB
  13. DILTIAZEM 24HR ER [Concomitant]

REACTIONS (2)
  - Decreased appetite [Unknown]
  - Bone pain [Unknown]

NARRATIVE: CASE EVENT DATE: 20241101
